FAERS Safety Report 14217965 (Version 1)
Quarter: 2017Q4

REPORT INFORMATION
  Report Type: Spontaneous
  Country: DK (occurrence: DK)
  Receive Date: 20171123
  Receipt Date: 20171123
  Transmission Date: 20180321
  Serious: Yes (Hospitalization, Other)
  Sender: FDA-Public Use
  Company Number: DK-ALEMBIC PHARMACUETICALS LIMITED-2017SCAL000922

PATIENT

DRUGS (4)
  1. QUETIAPINE FUMARATE. [Suspect]
     Active Substance: QUETIAPINE FUMARATE
     Indication: DEPRESSION
  2. PANTOPRAZOLE [Concomitant]
     Active Substance: PANTOPRAZOLE
     Indication: PRODUCT USED FOR UNKNOWN INDICATION
     Dosage: UNK
  3. ARIPIPRAZOLE. [Suspect]
     Active Substance: ARIPIPRAZOLE
     Indication: PSYCHOTIC SYMPTOM
     Dosage: 10 MG, QD
  4. QUETIAPINE FUMARATE. [Suspect]
     Active Substance: QUETIAPINE FUMARATE
     Indication: ANXIETY
     Dosage: 300 MG, QD

REACTIONS (8)
  - Blood creatine phosphokinase increased [Recovered/Resolved]
  - Discomfort [Recovering/Resolving]
  - Tremor [Recovering/Resolving]
  - Hypotension [Unknown]
  - Dizziness [Recovering/Resolving]
  - Muscle rigidity [Recovering/Resolving]
  - Parkinsonism [Recovering/Resolving]
  - Weight increased [Unknown]
